FAERS Safety Report 18672863 (Version 1)
Quarter: 2020Q4

REPORT INFORMATION
  Report Type: Spontaneous
  Country: TR (occurrence: TR)
  Receive Date: 20201228
  Receipt Date: 20201228
  Transmission Date: 20210114
  Serious: Yes (Other)
  Sender: FDA-Public Use
  Company Number: TR-BAYER-2020-283988

PATIENT
  Age: 23 Year
  Sex: Female
  Weight: 63 kg

DRUGS (5)
  1. VITAMIN D [VITAMIN D NOS] [Concomitant]
     Active Substance: VITAMIN D NOS
  2. CYCLO-PROGYNOVA [ESTRADIOL VALERATE;NORGESTREL] [Suspect]
     Active Substance: ESTRADIOL VALERATE\NORGESTREL
     Indication: PRODUCT USED FOR UNKNOWN INDICATION
     Dosage: UNK
     Route: 048
  3. YASMIN [Suspect]
     Active Substance: DROSPIRENONE\ETHINYL ESTRADIOL
     Indication: OESTROGEN DEFICIENCY
  4. YASMIN [Suspect]
     Active Substance: DROSPIRENONE\ETHINYL ESTRADIOL
     Indication: BLOOD OESTROGEN DECREASED
     Route: 048
  5. YASMIN [Suspect]
     Active Substance: DROSPIRENONE\ETHINYL ESTRADIOL
     Indication: MENSTRUAL CYCLE MANAGEMENT

REACTIONS (7)
  - Anti-Muellerian hormone level increased [None]
  - Weight increased [None]
  - Hypothyroidism [None]
  - Fertility increased [None]
  - Off label use [None]
  - Therapeutic response unexpected [None]
  - Product use in unapproved indication [None]
